FAERS Safety Report 9313348 (Version 1)
Quarter: 2013Q2

REPORT INFORMATION
  Report Type: Spontaneous
  Country: US (occurrence: US)
  Receive Date: 20130528
  Receipt Date: 20130528
  Transmission Date: 20140414
  Serious: No
  Sender: FDA-Public Use
  Company Number: US-ABBOTT-13P-163-1061335-00

PATIENT
  Age: 77 Year
  Sex: Male
  Weight: 110.78 kg

DRUGS (6)
  1. ANDROGEL [Suspect]
     Indication: BLOOD TESTOSTERONE DECREASED
     Dates: start: 201302
  2. SYNTHROID [Concomitant]
     Indication: PRODUCT USED FOR UNKNOWN INDICATION
  3. LOSARTAN [Concomitant]
     Indication: HYPERTENSION
  4. VITAMIN D [Concomitant]
     Indication: VITAMIN SUPPLEMENTATION
  5. ALLOPURINOL [Concomitant]
     Indication: GOUT
  6. HYDROCODONE [Concomitant]
     Indication: PAIN

REACTIONS (1)
  - Pruritus [Not Recovered/Not Resolved]
